FAERS Safety Report 12173494 (Version 3)
Quarter: 2016Q1

REPORT INFORMATION
  Report Type: Spontaneous
  Country: US (occurrence: US)
  Receive Date: 20160311
  Receipt Date: 20160317
  Transmission Date: 20160526
  Serious: No
  Sender: FDA-Public Use
  Company Number: US-GALDERMA-US15002602

PATIENT
  Sex: Female

DRUGS (3)
  1. ANTIDEPRESSANTS [Concomitant]
     Active Substance: UNSPECIFIED INGREDIENT
  2. FIBER [Concomitant]
     Active Substance: PSYLLIUM HUSK
  3. TRI-LUMA [Suspect]
     Active Substance: FLUOCINOLONE ACETONIDE\HYDROQUINONE\TRETINOIN
     Route: 061

REACTIONS (2)
  - Drug ineffective [Recovered/Resolved]
  - Acne [Recovered/Resolved]
